FAERS Safety Report 8260390-9 (Version None)
Quarter: 2012Q2

REPORT INFORMATION
  Report Type: 
  Country: None (occurrence: None)
  Receive Date: 20120404
  Receipt Date: 20120402
  Transmission Date: 20120825
  Serious: No
  Sender: FDA-Public Use
  Company Number: US-PFIZER INC-2012038885

PATIENT
  Sex: Female
  Weight: 92 kg

DRUGS (8)
  1. CHANTIX [Suspect]
     Dosage: 0.5 MG, 2X/DAY
     Route: 048
     Dates: start: 20120101, end: 20120101
  2. CHANTIX [Suspect]
     Dosage: 1 MG, 2X/DAY
     Route: 048
     Dates: start: 20120101
  3. LEVOTHYROXINE [Concomitant]
     Dosage: UNK
  4. ALPRAZOLAM [Concomitant]
     Indication: ANXIETY
     Dosage: 0.5 MG, AS NEEDED
  5. CYCLOBENZAPRINE [Concomitant]
     Indication: MUSCLE SPASMS
     Dosage: UNK
  6. CITALOPRAM [Concomitant]
     Indication: DEPRESSION
     Dosage: UNK
  7. IBUPROFEN [Concomitant]
     Indication: PAIN
     Dosage: 800 MG, 2X/DAY
  8. CHANTIX [Suspect]
     Indication: SMOKING CESSATION THERAPY
     Dosage: 0.5 MG, 1X/DAY
     Route: 048
     Dates: start: 20120101, end: 20120101

REACTIONS (4)
  - DRUG DISPENSING ERROR [None]
  - ABNORMAL DREAMS [None]
  - SLEEP DISORDER [None]
  - THERAPEUTIC RESPONSE UNEXPECTED [None]
